FAERS Safety Report 12449330 (Version 3)
Quarter: 2016Q3

REPORT INFORMATION
  Report Type: Spontaneous
  Country: US (occurrence: US)
  Receive Date: 20160608
  Receipt Date: 20160719
  Transmission Date: 20161109
  Serious: Yes (Hospitalization, Other)
  Sender: FDA-Public Use
  Company Number: US-ELI_LILLY_AND_COMPANY-US201605009931

PATIENT
  Age: 25 Year
  Sex: Female

DRUGS (8)
  1. ADCIRCA [Suspect]
     Active Substance: TADALAFIL
     Indication: PRODUCT USED FOR UNKNOWN INDICATION
     Dosage: 40 MG, UNKNOWN
     Route: 065
  2. AMBRISENTAN [Suspect]
     Active Substance: AMBRISENTAN
     Indication: PULMONARY HYPERTENSION
     Dosage: 5 MG, QD
     Route: 048
     Dates: start: 20150914, end: 20160217
  3. LEVEMIR [Concomitant]
     Active Substance: INSULIN DETEMIR
  4. HYDRALAZINE [Concomitant]
     Active Substance: HYDRALAZINE HYDROCHLORIDE
  5. AMBRISENTAN [Suspect]
     Active Substance: AMBRISENTAN
     Dosage: 10 MG, QD
     Route: 048
     Dates: start: 20160218
  6. FUROSEMIDE. [Concomitant]
     Active Substance: FUROSEMIDE
  7. NOVOLOG [Concomitant]
     Active Substance: INSULIN ASPART
  8. SIMVASTATIN. [Concomitant]
     Active Substance: SIMVASTATIN

REACTIONS (4)
  - Pneumonia [Recovered/Resolved]
  - End stage renal disease [Unknown]
  - Pulmonary arterial hypertension [Not Recovered/Not Resolved]
  - Sepsis [Recovered/Resolved]
